FAERS Safety Report 11349473 (Version 1)
Quarter: 2015Q3

REPORT INFORMATION
  Report Type: Spontaneous
  Country: AU (occurrence: AU)
  Receive Date: 20150807
  Receipt Date: 20150807
  Transmission Date: 20151125
  Serious: Yes (Other)
  Sender: FDA-Public Use
  Company Number: PHHY2015AU091830

PATIENT

DRUGS (3)
  1. TERBINAFINE. [Concomitant]
     Active Substance: TERBINAFINE
     Indication: SCEDOSPORIUM INFECTION
     Route: 065
  2. VORICONAZOLE. [Interacting]
     Active Substance: VORICONAZOLE
     Indication: SCEDOSPORIUM INFECTION
     Route: 065
  3. FLUCLOXACILLIN [Suspect]
     Active Substance: FLUCLOXACILLIN
     Indication: STAPHYLOCOCCAL INFECTION
     Route: 065

REACTIONS (2)
  - Therapeutic response decreased [Recovered/Resolved]
  - Drug interaction [Recovered/Resolved]
